FAERS Safety Report 24446299 (Version 1)
Quarter: 2024Q4

REPORT INFORMATION
  Report Type: Spontaneous
  Country: JP (occurrence: JP)
  Receive Date: 20241016
  Receipt Date: 20241016
  Transmission Date: 20250115
  Serious: Yes (Other)
  Sender: ELI LILLY AND COMPANY
  Company Number: JP-ELI_LILLY_AND_COMPANY-JP202410007836

PATIENT

DRUGS (1)
  1. SOMATROPIN [Suspect]
     Active Substance: SOMATROPIN
     Indication: Osteochondrodysplasia
     Route: 058

REACTIONS (2)
  - Adenoidal hypertrophy [Unknown]
  - Sleep apnoea syndrome [Not Recovered/Not Resolved]
